FAERS Safety Report 11836248 (Version 1)
Quarter: 2015Q4

REPORT INFORMATION
  Report Type: Spontaneous
  Country: PL (occurrence: PL)
  Receive Date: 20151215
  Receipt Date: 20151215
  Transmission Date: 20160305
  Serious: Yes (Hospitalization)
  Sender: FDA-Public Use
  Company Number: PL-ABBVIE-15K-129-1518608-00

PATIENT
  Age: 26 Year
  Sex: Female

DRUGS (2)
  1. HUMIRA [Suspect]
     Active Substance: ADALIMUMAB
     Route: 058
     Dates: start: 2015
  2. HUMIRA [Suspect]
     Active Substance: ADALIMUMAB
     Indication: CROHN^S DISEASE
     Route: 058
     Dates: start: 201505

REACTIONS (6)
  - Erythema [Unknown]
  - Chills [Unknown]
  - Lymphadenopathy [Unknown]
  - Gastrointestinal oedema [Unknown]
  - Angiopathy [Unknown]
  - Thyroiditis subacute [Recovered/Resolved]

NARRATIVE: CASE EVENT DATE: 2015
